FAERS Safety Report 20141428 (Version 3)
Quarter: 2022Q1

REPORT INFORMATION
  Report Type: Spontaneous
  Country: JP (occurrence: JP)
  Receive Date: 20211202
  Receipt Date: 20220318
  Transmission Date: 20220423
  Serious: Yes (Hospitalization)
  Sender: FDA-Public Use
  Company Number: JP-Eisai-202109088_LEN_P_1

PATIENT
  Sex: Female
  Weight: 58 kg

DRUGS (8)
  1. LENVIMA [Suspect]
     Active Substance: LENVATINIB
     Indication: Thyroid cancer
     Route: 048
     Dates: start: 20180801, end: 20180806
  2. LENVIMA [Suspect]
     Active Substance: LENVATINIB
     Route: 048
     Dates: start: 20180807, end: 20181014
  3. LENVIMA [Suspect]
     Active Substance: LENVATINIB
     Route: 048
     Dates: start: 20181015, end: 20190623
  4. LENVIMA [Suspect]
     Active Substance: LENVATINIB
     Route: 048
     Dates: start: 20190624, end: 20190721
  5. LENVIMA [Suspect]
     Active Substance: LENVATINIB
     Dosage: 2 WEEKS ON/1 WEEK OFF
     Route: 048
     Dates: start: 20190722, end: 20210822
  6. LENVIMA [Suspect]
     Active Substance: LENVATINIB
     Dosage: 1 WEEK ON/1 WEEK OFF
     Route: 048
     Dates: start: 20210823, end: 20211107
  7. CILNIDIPINE [Concomitant]
     Active Substance: CILNIDIPINE
     Indication: Blood pressure increased
     Dosage: DOSE AND FREQUENCY UNKNOWN
     Route: 065
  8. CILNIDIPINE [Concomitant]
     Active Substance: CILNIDIPINE
     Dosage: UNKNOWN INCREASED DOSE, FREQUENCY UNKNOWN
     Route: 065

REACTIONS (1)
  - Brain oedema [Recovering/Resolving]

NARRATIVE: CASE EVENT DATE: 20211107
